FAERS Safety Report 4537550-3 (Version None)
Quarter: 2005Q1

REPORT INFORMATION
  Report Type: 
  Country: None (occurrence: None)
  Receive Date: 20041216
  Receipt Date: 20040402
  Transmission Date: 20050727
  Serious: Yes (Hospitalization, Other)
  Sender: FDA-Public Use
  Company Number: HQWYE352505APR04

PATIENT
  Age: 43 Year
  Sex: Female

DRUGS (2)
  1. EFFEXOR XR [Suspect]
     Indication: DEPRESSION
     Dosage: 30 TO 45, 150 MG EFFEXOR XR (OVERDOSE AMOUNT), ORAL
     Route: 048
     Dates: start: 20040329, end: 20040329
  2. SEROQUEL [Concomitant]

REACTIONS (3)
  - CONVULSION [None]
  - INTENTIONAL MISUSE [None]
  - SUICIDE ATTEMPT [None]
